FAERS Safety Report 10173256 (Version 1)
Quarter: 2014Q2

REPORT INFORMATION
  Report Type: Spontaneous
  Country: US (occurrence: None)
  Receive Date: 20140514
  Receipt Date: 20140514
  Transmission Date: 20141212
  Serious: No
  Sender: FDA-Public Use
  Company Number: None

PATIENT
  Age: 60 Year
  Sex: Female
  Weight: 120 kg

DRUGS (1)
  1. TEFLARO [Suspect]
     Indication: CELLULITIS STAPHYLOCOCCAL
     Route: 042

REACTIONS (4)
  - Neutropenia [None]
  - Tachypnoea [None]
  - Hypoxia [None]
  - Respiratory failure [None]
